FAERS Safety Report 20718617 (Version 1)
Quarter: 2022Q2

REPORT INFORMATION
  Report Type: Spontaneous
  Country: US (occurrence: None)
  Receive Date: 20220418
  Receipt Date: 20220418
  Transmission Date: 20220720
  Serious: No
  Sender: FDA-Public Use
  Company Number: US-SUPERNUS Pharmaceuticals, Inc.-SUP202203-000556

PATIENT
  Age: 15 Year

DRUGS (3)
  1. QELBREE [Suspect]
     Active Substance: VILOXAZINE HYDROCHLORIDE
     Indication: Product used for unknown indication
     Dosage: 100MG
  2. FOCALIN XR [Interacting]
     Active Substance: DEXMETHYLPHENIDATE HYDROCHLORIDE
  3. FOCALIN XR [Interacting]
     Active Substance: DEXMETHYLPHENIDATE HYDROCHLORIDE

REACTIONS (3)
  - Epistaxis [Unknown]
  - Drug interaction [Unknown]
  - Headache [Unknown]
